FAERS Safety Report 11172198 (Version 3)
Quarter: 2015Q4

REPORT INFORMATION
  Report Type: Spontaneous
  Country: GB (occurrence: GB)
  Receive Date: 20150608
  Receipt Date: 20151026
  Transmission Date: 20160304
  Serious: Yes (Hospitalization, Other)
  Sender: FDA-Public Use
  Company Number: GB-TEVA-556125ISR

PATIENT
  Sex: Female
  Weight: 74 kg

DRUGS (4)
  1. METFORMIN [Suspect]
     Active Substance: METFORMIN HYDROCHLORIDE
     Dosage: 3400 MILLIGRAM DAILY;
     Route: 065
     Dates: start: 20121017
  2. METFORMIN [Suspect]
     Active Substance: METFORMIN HYDROCHLORIDE
     Dosage: 850 MILLIGRAM DAILY;
     Route: 065
     Dates: start: 2014
  3. IRON [Concomitant]
     Active Substance: IRON
     Dosage: 20 YEARS OR SO
     Route: 065
  4. SIMVASTATIN. [Concomitant]
     Active Substance: SIMVASTATIN
     Route: 065

REACTIONS (6)
  - Hypoglycaemia [Unknown]
  - Weight decreased [Unknown]
  - Condition aggravated [Unknown]
  - Lower limb fracture [Unknown]
  - Drug prescribing error [Unknown]
  - Body temperature decreased [Unknown]
